FAERS Safety Report 8698357 (Version 2)
Quarter: 2012Q4

REPORT INFORMATION
  Report Type: 
  Country: US (occurrence: US)
  Receive Date: 20120802
  Receipt Date: 20121217
  Transmission Date: 20130627
  Serious: Yes (Hospitalization)
  Sender: FDA-Public Use
  Company Number: US-BAYER-2012-073860

PATIENT
  Age: 49 Year
  Sex: Female
  Weight: 66.21 kg

DRUGS (13)
  1. YASMIN [Suspect]
     Dosage: UNK
     Dates: start: 200206, end: 200402
  2. LEVOXYL [Concomitant]
     Dosage: 0.088 mg, 1d
     Route: 048
  3. ACIPHEX [Concomitant]
     Dosage: 20 mg, QD
     Route: 048
  4. OTC (OVER THE COUNTER) [Concomitant]
     Indication: PAIN
  5. TYLENOL [Concomitant]
     Indication: HEADACHE
  6. DULCOLAX [BISACODYL] [Concomitant]
  7. ATIVAN [Concomitant]
     Dosage: UNK UNK, PRN
  8. THYROXINE [Concomitant]
     Indication: THYROID DISORDER NOS
     Dosage: UNK
     Dates: start: 2000
  9. SYNTHROID [Concomitant]
     Indication: THYROID DISORDER NOS
     Dosage: UNK
     Dates: start: 2000
  10. LORAZEPAM [Concomitant]
     Dosage: UNK
     Dates: start: 2000
  11. NSAID^S [Concomitant]
     Indication: UNEVALUABLE EVENT
     Dosage: UNK
     Dates: start: 2000
  12. ACETAMINOPHEN W/CODEINE [Concomitant]
     Dosage: 1 q (interpreted as every) 6 to 8 H (interpreted as hours) prn
     Dates: start: 20040113
  13. OTC (INTERPRETED AS OVER THE COUNTER)PAIN RELIEVERS [Concomitant]
     Indication: PAIN RELIEF

REACTIONS (7)
  - Jugular vein thrombosis [None]
  - Injury [None]
  - Transverse sinus thrombosis [None]
  - Emotional distress [None]
  - Fear of death [None]
  - Anxiety [None]
  - Mental disorder [None]
